FAERS Safety Report 6579860-4 (Version None)
Quarter: 2010Q1

REPORT INFORMATION
  Report Type: 
  Country: None (occurrence: None)
  Receive Date: 20100209
  Receipt Date: 20100209
  Transmission Date: 20100710
  Serious: Yes (Hospitalization)
  Sender: FDA-Public Use
  Company Number: None

PATIENT
  Age: 43 Year
  Sex: Female
  Weight: 65.49 kg

DRUGS (1)
  1. CARBAMAZEPINE [Suspect]
     Dosage: }1 WEEK {=MONTH

REACTIONS (12)
  - DRY SKIN [None]
  - JAUNDICE [None]
  - LIVER FUNCTION TEST ABNORMAL [None]
  - MUCOUS MEMBRANE DISORDER [None]
  - NAUSEA [None]
  - PRURITUS [None]
  - RASH ERYTHEMATOUS [None]
  - RASH GENERALISED [None]
  - RASH MACULAR [None]
  - SKIN DISCOLOURATION [None]
  - SKIN EXFOLIATION [None]
  - VOMITING [None]
